FAERS Safety Report 7002224-6 (Version None)
Quarter: 2010Q3

REPORT INFORMATION
  Report Type: 
  Country: None (occurrence: None)
  Receive Date: 20100920
  Receipt Date: 20070613
  Transmission Date: 20110219
  Serious: Yes (Disabling)
  Sender: FDA-Public Use
  Company Number: US-ASTRAZENECA-2006UW21735

PATIENT
  Age: 54 Year
  Sex: Male
  Weight: 88 kg

DRUGS (19)
  1. SEROQUEL [Suspect]
     Indication: NIGHTMARE
     Dosage: TOTAL DAILY DOSE 1600 MG
     Route: 048
     Dates: start: 20040101, end: 20060401
  2. SEROQUEL [Suspect]
     Indication: HALLUCINATION
     Dosage: TOTAL DAILY DOSE 1600 MG
     Route: 048
     Dates: start: 20040101, end: 20060401
  3. SEROQUEL [Suspect]
     Indication: PARANOIA
     Dosage: TOTAL DAILY DOSE 1600 MG
     Route: 048
     Dates: start: 20040101, end: 20060401
  4. SEROQUEL [Suspect]
     Dosage: 300 MG IN MORNING AND 600 MG AT NIGHT
     Route: 048
     Dates: start: 20040907
  5. SEROQUEL [Suspect]
     Dosage: 300 MG IN MORNING AND 600 MG AT NIGHT
     Route: 048
     Dates: start: 20040907
  6. SEROQUEL [Suspect]
     Dosage: 300 MG IN MORNING AND 600 MG AT NIGHT
     Route: 048
     Dates: start: 20040907
  7. RISPERDAL [Concomitant]
     Dosage: TOTAL DAILY DOSE 60 MG
     Dates: start: 20040101
  8. ZYPREXA [Concomitant]
     Dosage: TOTAL DAILY DOSE 600 MG
     Dates: start: 20040101, end: 20060101
  9. SIMVASTATIN [Concomitant]
     Dosage: 20 TO 40 MG
     Route: 048
     Dates: start: 20040309
  10. GEODON [Concomitant]
     Dates: start: 20061120
  11. PROPRANOLOL [Concomitant]
     Dosage: 60 TO 120 MG
     Route: 048
     Dates: start: 20040309
  12. ATROVENT [Concomitant]
     Dates: start: 20061120
  13. OMEPRAZOLE [Concomitant]
     Route: 048
     Dates: start: 20061120
  14. METHOCARBAMOL [Concomitant]
     Dates: start: 20061120
  15. EFFEXOR [Concomitant]
     Dosage: 225 TO 300 MG
     Route: 048
     Dates: start: 20050228
  16. EFFEXOR [Concomitant]
     Dosage: TOTAL DAILY 1200 MG
  17. TRAZODONE HCL [Concomitant]
     Dosage: 50 MG FOUR TAB AT BEDTIME
  18. FUROSEMIDE [Concomitant]
     Route: 048
  19. RABEPRAZOLE SODIUM [Concomitant]
     Route: 048
     Dates: start: 20040309

REACTIONS (5)
  - BLOOD CHOLESTEROL INCREASED [None]
  - HYPERCHOLESTEROLAEMIA [None]
  - HYPERLIPIDAEMIA [None]
  - HYPOCHOLESTEROLAEMIA [None]
  - TARDIVE DYSKINESIA [None]
